FAERS Safety Report 4265755-8 (Version None)
Quarter: 2004Q1

REPORT INFORMATION
  Report Type: 
  Country: None (occurrence: None)
  Receive Date: 20040107
  Receipt Date: 20040107
  Transmission Date: 20041129
  Serious: Yes (Disabling)
  Sender: FDA-Public Use
  Company Number: None

PATIENT
  Sex: Female
  Weight: 47.6277 kg

DRUGS (1)
  1. EVISTA [Suspect]
     Indication: OSTEOPOROSIS PROPHYLAXIS
     Dosage: DAILY ORAL
     Route: 048

REACTIONS (3)
  - BLINDNESS UNILATERAL [None]
  - RETINAL VASCULAR OCCLUSION [None]
  - VISION BLURRED [None]
